FAERS Safety Report 11497342 (Version 3)
Quarter: 2015Q4

REPORT INFORMATION
  Report Type: Spontaneous
  Country: IT (occurrence: IT)
  Receive Date: 20150911
  Receipt Date: 20151126
  Transmission Date: 20160304
  Serious: Yes (Hospitalization, Other)
  Sender: FDA-Public Use
  Company Number: IT-BRISTOL-MYERS SQUIBB COMPANY-BMS-2015-060319

PATIENT
  Age: 92 Year
  Sex: Female
  Weight: 70 kg

DRUGS (5)
  1. COUMADIN [Suspect]
     Active Substance: WARFARIN SODIUM
     Indication: ATRIAL FIBRILLATION
     Dosage: 1 UNIT, PRN
     Route: 048
     Dates: start: 20141101, end: 20150404
  2. ACTRAPHANE [Concomitant]
     Active Substance: INSULIN HUMAN
     Indication: DIABETES MELLITUS
     Dosage: 20 IU, UNK
     Route: 058
  3. CEFIXORAL [Interacting]
     Active Substance: CEFIXIME
     Indication: PHARYNGITIS
     Dosage: UNK
     Route: 065
     Dates: start: 20150328, end: 20150401
  4. PARACETAMOL [Interacting]
     Active Substance: ACETAMINOPHEN
     Indication: PHARYNGITIS
     Dosage: UNK
     Route: 065
     Dates: start: 20150328, end: 20150401
  5. SEQUACOR [Concomitant]
     Active Substance: BISOPROLOL
     Indication: PRODUCT USED FOR UNKNOWN INDICATION
     Dosage: 1.25 MG, UNK
     Route: 048

REACTIONS (5)
  - Anaemia [Recovered/Resolved]
  - Drug interaction [Unknown]
  - Melaena [Recovered/Resolved]
  - Transfusion [Unknown]
  - Duodenal ulcer haemorrhage [Recovered/Resolved]

NARRATIVE: CASE EVENT DATE: 20150404
